FAERS Safety Report 25739556 (Version 7)
Quarter: 2025Q4

REPORT INFORMATION
  Report Type: Report from Study
  Country: US (occurrence: US)
  Receive Date: 20250829
  Receipt Date: 20251219
  Transmission Date: 20260117
  Serious: Yes (Other)
  Sender: TAKEDA
  Company Number: US-TAKEDA-2025TUS072503

PATIENT
  Age: 87 Year
  Sex: Female
  Weight: 68.027 kg

DRUGS (6)
  1. IXAZOMIB [Suspect]
     Active Substance: IXAZOMIB
     Indication: Plasma cell myeloma
     Dosage: 4 MILLIGRAM
  2. IXAZOMIB [Suspect]
     Active Substance: IXAZOMIB
     Indication: Breast cancer female
     Dosage: 4 MILLIGRAM
     Dates: start: 20250801, end: 20250815
  3. IXAZOMIB [Suspect]
     Active Substance: IXAZOMIB
     Indication: Bone cancer
     Dosage: 2.3 MILLIGRAM
  4. DEXAMETHASONE [Suspect]
     Active Substance: DEXAMETHASONE
     Indication: Plasma cell myeloma
     Dosage: UNK
  5. CYCLOPHOSPHAMIDE [Suspect]
     Active Substance: CYCLOPHOSPHAMIDE
     Indication: Plasma cell myeloma
     Dosage: UNK
  6. REVLIMID [Concomitant]
     Active Substance: LENALIDOMIDE
     Dosage: UNK

REACTIONS (28)
  - Uterine infection [Not Recovered/Not Resolved]
  - Abdominal pain upper [Recovered/Resolved]
  - Decreased appetite [Recovered/Resolved]
  - Chills [Recovering/Resolving]
  - Headache [Recovered/Resolved]
  - Arthralgia [Recovered/Resolved]
  - Back pain [Recovering/Resolving]
  - Nausea [Recovered/Resolved]
  - Constipation [Not Recovered/Not Resolved]
  - Rash [Unknown]
  - Bronchitis [Unknown]
  - Cystitis [Recovered/Resolved]
  - Dysuria [Unknown]
  - Hypoaesthesia [Unknown]
  - Malaise [Unknown]
  - Tremor [Unknown]
  - Fall [Recovered/Resolved]
  - Speech disorder [Not Recovered/Not Resolved]
  - Product use issue [Unknown]
  - Vaginal infection [Unknown]
  - Throat irritation [Not Recovered/Not Resolved]
  - Off label use [Not Recovered/Not Resolved]
  - Pain in extremity [Not Recovered/Not Resolved]
  - Cough [Recovering/Resolving]
  - Dizziness [Recovered/Resolved]
  - Fatigue [Recovering/Resolving]
  - Dry eye [Recovered/Resolved]
  - Vision blurred [Recovered/Resolved]

NARRATIVE: CASE EVENT DATE: 20250816
